FAERS Safety Report 6382658-3 (Version None)
Quarter: 2009Q3

REPORT INFORMATION
  Report Type: 
  Country: None (occurrence: None)
  Receive Date: 20090930
  Receipt Date: 20090924
  Transmission Date: 20100115
  Serious: Yes (Other)
  Sender: FDA-Public Use
  Company Number: JP-EISAI INC.-E2090-00846-SPO-JP

PATIENT
  Age: 1 Year

DRUGS (1)
  1. EXCEGRAN [Suspect]
     Indication: CONVULSION
     Dosage: UNKNOWN
     Route: 048

REACTIONS (1)
  - NEUROLEPTIC MALIGNANT SYNDROME [None]
